FAERS Safety Report 8543330-4 (Version None)
Quarter: 2012Q3

REPORT INFORMATION
  Report Type: 
  Country: None (occurrence: None)
  Receive Date: 20120727
  Receipt Date: 20120719
  Transmission Date: 20120928
  Serious: Yes (Other)
  Sender: FDA-Public Use
  Company Number: US-US-EMD SERONO, INC.-7051952

PATIENT
  Sex: Female
  Weight: 107 kg

DRUGS (2)
  1. LYRICA [Concomitant]
     Indication: NEUROPATHY PERIPHERAL
  2. REBIF [Suspect]
     Indication: MULTIPLE SCLEROSIS
     Route: 058

REACTIONS (4)
  - ASTHMA [None]
  - HYPERSENSITIVITY [None]
  - NASOPHARYNGITIS [None]
  - OSTEOMYELITIS [None]
